FAERS Safety Report 6010137-1 (Version None)
Quarter: 2008Q4

REPORT INFORMATION
  Report Type: 
  Country: None (occurrence: None)
  Receive Date: 20081216
  Receipt Date: 20081202
  Transmission Date: 20090506
  Serious: Yes (Other)
  Sender: FDA-Public Use
  Company Number: DSJ-2008-14512

PATIENT
  Age: 54 Year
  Sex: Male

DRUGS (3)
  1. OLMESARTAN MEDOXOMIL [Suspect]
     Indication: HYPERTENSION
     Dosage: 20 MG, PER ORAL
     Route: 048
     Dates: start: 20080401, end: 20081127
  2. CALBLOCK (AZELNIDIPINE) (TABLET) (AZELNIDIPINE) [Suspect]
     Indication: HYPERTENSION
     Dosage: 8 MG, PRE ORAL
     Route: 048
     Dates: start: 20081101, end: 20081127
  3. LIPITOR [Suspect]
     Indication: HYPERLIPIDAEMIA
     Dosage: 5 MG, PRE ORAL
     Route: 048

REACTIONS (2)
  - ANAEMIA [None]
  - DUODENAL ULCER HAEMORRHAGE [None]
